FAERS Safety Report 13703284 (Version 3)
Quarter: 2017Q3

REPORT INFORMATION
  Report Type: Spontaneous
  Country: US (occurrence: US)
  Receive Date: 20170629
  Receipt Date: 20170913
  Transmission Date: 20171127
  Serious: Yes (Other)
  Sender: FDA-Public Use
  Company Number: US-TEVA-780728USA

PATIENT
  Sex: Female

DRUGS (1)
  1. DEXTROAMPHETAMINE SULFATE. [Suspect]
     Active Substance: DEXTROAMPHETAMINE SULFATE
     Indication: ATTENTION DEFICIT/HYPERACTIVITY DISORDER
     Dates: start: 201706

REACTIONS (8)
  - Somnolence [Unknown]
  - Dizziness [Unknown]
  - Drug ineffective [Not Recovered/Not Resolved]
  - Confusional state [Unknown]
  - Fatigue [Unknown]
  - Depressed level of consciousness [Unknown]
  - Disturbance in attention [Unknown]
  - Drug withdrawal syndrome [Unknown]

NARRATIVE: CASE EVENT DATE: 201706
